FAERS Safety Report 14372738 (Version 3)
Quarter: 2018Q2

REPORT INFORMATION
  Report Type: Spontaneous
  Country: US (occurrence: US)
  Receive Date: 20180110
  Receipt Date: 20180404
  Transmission Date: 20180711
  Serious: Yes (Hospitalization, Other)
  Sender: FDA-Public Use
  Company Number: US-PFIZER INC-2018009023

PATIENT
  Age: 76 Year
  Sex: Female

DRUGS (7)
  1. DILANTIN [Interacting]
     Active Substance: PHENYTOIN
     Dosage: 250 MG, ALTERNATE DAY
     Dates: start: 200802, end: 20180116
  2. DILANTIN [Interacting]
     Active Substance: PHENYTOIN
     Indication: SEIZURE
     Dosage: 200 MG, ALTERNATE DAY
     Dates: start: 200407, end: 200707
  3. FASLODEX [Concomitant]
     Active Substance: FULVESTRANT
     Dosage: UNK
     Dates: start: 20171122
  4. DEXTROL [Concomitant]
     Dosage: UNK
     Dates: start: 20180313
  5. IBRANCE [Interacting]
     Active Substance: PALBOCICLIB
     Dosage: 100 MG, 1X/DAY
     Dates: start: 20171128
  6. KEPPRA [Concomitant]
     Active Substance: LEVETIRACETAM
     Dosage: UNK
     Dates: start: 20180117
  7. IBRANCE [Suspect]
     Active Substance: PALBOCICLIB
     Indication: BREAST CANCER METASTATIC
     Dosage: UNK
     Dates: start: 20171127

REACTIONS (4)
  - Anaemia [Not Recovered/Not Resolved]
  - Syncope [Recovered/Resolved]
  - Asthenia [Not Recovered/Not Resolved]
  - Drug interaction [Recovered/Resolved]

NARRATIVE: CASE EVENT DATE: 201711
